FAERS Safety Report 12098953 (Version 1)
Quarter: 2016Q1

REPORT INFORMATION
  Report Type: Spontaneous
  Country: US (occurrence: None)
  Receive Date: 20160219
  Receipt Date: 20160219
  Transmission Date: 20160526
  Serious: Yes (Life-Threatening, Disabling)
  Sender: FDA-Public Use
  Company Number: None

PATIENT
  Age: 24 Year
  Sex: Female
  Weight: 60.33 kg

DRUGS (3)
  1. CIPROFLOXACIN. [Suspect]
     Active Substance: CIPROFLOXACIN
     Indication: URINARY TRACT INFECTION
     Dosage: 10 PILLS TWICE DAILY TAKEN BY MOUTH
     Route: 048
     Dates: start: 20160104, end: 20160203
  2. FISH OIL [Concomitant]
     Active Substance: FISH OIL
  3. MULTI VITAMIN [Concomitant]
     Active Substance: VITAMINS

REACTIONS (7)
  - Arthralgia [None]
  - Pain in extremity [None]
  - Burning sensation [None]
  - Rash [None]
  - Paraesthesia [None]
  - Joint stiffness [None]
  - Gait disturbance [None]

NARRATIVE: CASE EVENT DATE: 20160106
